FAERS Safety Report 12746323 (Version 3)
Quarter: 2016Q4

REPORT INFORMATION
  Report Type: Spontaneous
  Country: US (occurrence: US)
  Receive Date: 20160915
  Receipt Date: 20161123
  Transmission Date: 20170207
  Serious: Yes (Other)
  Sender: FDA-Public Use
  Company Number: US-SEBELA IRELAND LIMITED-2016SEB01464

PATIENT
  Sex: Female
  Weight: 70.3 kg

DRUGS (8)
  1. IMURAN [Suspect]
     Active Substance: AZATHIOPRINE
     Dosage: 100 MG, 1X/DAY
     Route: 048
     Dates: start: 2000, end: 2003
  2. IMURAN [Suspect]
     Active Substance: AZATHIOPRINE
     Dosage: 100 MG, 1X/DAY
     Route: 048
     Dates: start: 20131013
  3. ATENOLOL. [Concomitant]
     Active Substance: ATENOLOL
     Indication: BLOOD PRESSURE MEASUREMENT
     Dosage: 25 MG, 2X/DAY
     Dates: start: 1990
  4. PREDNISONE. [Suspect]
     Active Substance: PREDNISONE
  5. LISINOPRIL. [Concomitant]
     Active Substance: LISINOPRIL
     Dosage: 5 MG, 1X/DAY
  6. IMURAN [Suspect]
     Active Substance: AZATHIOPRINE
     Dosage: UNK
     Dates: start: 201611
  7. AZATHIOPRINE (ZYDUS) [Suspect]
     Active Substance: AZATHIOPRINE
     Indication: ASTHMA
     Dosage: 100 MG, 1X/DAY
     Route: 048
     Dates: start: 2000, end: 2003
  8. AZATHIOPRINE (ZYDUS) [Suspect]
     Active Substance: AZATHIOPRINE
     Dosage: 100 MG, 1X/DAY
     Route: 048
     Dates: start: 20131013

REACTIONS (14)
  - Diarrhoea [Recovered/Resolved]
  - Accident [Recovered/Resolved]
  - Loss of consciousness [Unknown]
  - Unresponsive to stimuli [Unknown]
  - Atrial fibrillation [Unknown]
  - Dyspnoea [Unknown]
  - Off label use [Not Recovered/Not Resolved]
  - Angiopathy [Unknown]
  - Syncope [Recovered/Resolved]
  - Nodule [Unknown]
  - Deafness [Unknown]
  - Aphonia [Unknown]
  - Asthenia [Unknown]
  - Dehydration [Unknown]

NARRATIVE: CASE EVENT DATE: 2000
